FAERS Safety Report 25408495 (Version 1)
Quarter: 2025Q2

REPORT INFORMATION
  Report Type: Spontaneous
  Country: US (occurrence: US)
  Receive Date: 20250606
  Receipt Date: 20250606
  Transmission Date: 20250716
  Serious: Yes (Other)
  Sender: MADRIGAL PHARMACEUTICALS
  Company Number: US-MADRIGAL PHARMACEUTICALS, INC-2025REZ5959

PATIENT

DRUGS (2)
  1. REZDIFFRA [Suspect]
     Active Substance: RESMETIROM
     Indication: Product used for unknown indication
     Route: 065
  2. REZDIFFRA [Suspect]
     Active Substance: RESMETIROM
     Route: 065
     Dates: start: 20250221

REACTIONS (15)
  - Syncope [Unknown]
  - Abnormal uterine bleeding [Unknown]
  - Weight decreased [Unknown]
  - Hepatic pain [Unknown]
  - Pruritus [Unknown]
  - Abdominal pain upper [Unknown]
  - Heart rate increased [Unknown]
  - Dizziness [Unknown]
  - Malaise [Unknown]
  - Decreased appetite [Unknown]
  - Nausea [Unknown]
  - Vomiting [Unknown]
  - Diarrhoea [Unknown]
  - Constipation [Unknown]
  - Unevaluable event [Unknown]

NARRATIVE: CASE EVENT DATE: 20250101
